FAERS Safety Report 6293830-5 (Version None)
Quarter: 2009Q3

REPORT INFORMATION
  Report Type: 
  Country: None (occurrence: None)
  Receive Date: 20090803
  Receipt Date: 20090730
  Transmission Date: 20100115
  Serious: Yes (Hospitalization)
  Sender: FDA-Public Use
  Company Number: PHHO2005US15389

PATIENT
  Sex: Female
  Weight: 69.9 kg

DRUGS (2)
  1. RAD 666 RAD++CMAS [Suspect]
     Indication: CHEMOTHERAPY MULTIPLE AGENTS SYSTEMIC
     Dosage: 5 MG, QD
     Route: 048
     Dates: start: 20050908, end: 20050920
  2. TARCEVA [Suspect]
     Indication: BREAST CANCER
     Dosage: 100 MG, QD
     Route: 048
     Dates: start: 20050908, end: 20050920

REACTIONS (9)
  - CONSTIPATION [None]
  - DEHYDRATION [None]
  - DERMATITIS [None]
  - DYSPHAGIA [None]
  - MOUTH ULCERATION [None]
  - MUCOSAL INFLAMMATION [None]
  - ORAL PAIN [None]
  - PYREXIA [None]
  - RASH MACULO-PAPULAR [None]
